FAERS Safety Report 7603505-5 (Version None)
Quarter: 2011Q2

REPORT INFORMATION
  Report Type: 
  Country: None (occurrence: None)
  Receive Date: 20110629
  Receipt Date: 20110616
  Transmission Date: 20111010
  Serious: Yes (Other)
  Sender: FDA-Public Use
  Company Number: 2011SP028557

PATIENT
  Age: 76 Year
  Sex: Female

DRUGS (1)
  1. ORADEXON (DEXAMETHASONE) (DEXAMETHASONE /00016001/) [Suspect]
     Indication: PRODUCT USED FOR UNKNOWN INDICATION
     Dosage: PO
     Route: 048

REACTIONS (4)
  - PRODUCT FORMULATION ISSUE [None]
  - HYPOTENSION [None]
  - ARRHYTHMIA [None]
  - ANXIETY [None]
